FAERS Safety Report 7366201-8 (Version None)
Quarter: 2011Q1

REPORT INFORMATION
  Report Type: 
  Country: None (occurrence: None)
  Receive Date: 20110322
  Receipt Date: 20110308
  Transmission Date: 20110831
  Serious: Yes (Hospitalization)
  Sender: FDA-Public Use
  Company Number: US-JNJFOC-20091101201

PATIENT
  Sex: Female
  Weight: 43 kg

DRUGS (4)
  1. REMICADE [Suspect]
     Indication: INFLAMMATORY BOWEL DISEASE
     Dosage: TOTAL 8 DOSES
     Route: 042
     Dates: start: 20080911, end: 20090908
  2. MESALAMINE [Concomitant]
  3. CIPRO [Concomitant]
  4. METRONIDAZOLE [Concomitant]

REACTIONS (1)
  - INTESTINAL OBSTRUCTION [None]
